FAERS Safety Report 7240160-0 (Version None)
Quarter: 2011Q1

REPORT INFORMATION
  Report Type: 
  Country: None (occurrence: None)
  Receive Date: 20110124
  Receipt Date: 20101216
  Transmission Date: 20110831
  Serious: Yes (Hospitalization, Other)
  Sender: FDA-Public Use
  Company Number: US-BAYER-201025751NA

PATIENT
  Sex: Female
  Weight: 64 kg

DRUGS (6)
  1. LISINOPRIL [Concomitant]
     Indication: HYPERTENSION
  2. YAZ [Suspect]
     Indication: CONTRACEPTION
     Route: 048
     Dates: start: 20100301, end: 20100401
  3. OCELLA [Suspect]
     Indication: CONTRACEPTION
     Route: 048
     Dates: start: 20080801, end: 20100201
  4. UNCODEABLE ^UNCLASSIFIABLE^ [Concomitant]
  5. YASMIN [Suspect]
     Indication: CONTRACEPTION
     Route: 048
     Dates: start: 20030701, end: 20080701
  6. PREVACID [Concomitant]

REACTIONS (4)
  - CHOLECYSTECTOMY [None]
  - DYSPHAGIA [None]
  - GASTRITIS [None]
  - OESOPHAGEAL STENOSIS [None]
